FAERS Safety Report 9993801 (Version 1)
Quarter: 2014Q1

REPORT INFORMATION
  Report Type: Spontaneous
  Country: US (occurrence: US)
  Receive Date: 20140310
  Receipt Date: 20140310
  Transmission Date: 20141002
  Serious: No
  Sender: FDA-Public Use
  Company Number: US-AMGEN-USASP2013025632

PATIENT
  Age: 51 Year
  Sex: Female

DRUGS (9)
  1. SENSIPAR [Suspect]
     Indication: HYPERPARATHYROIDISM SECONDARY
     Dosage: 30 MG, QD
  2. FUROSEMIDE [Concomitant]
  3. TRIAVIL [Concomitant]
  4. ZOLOFT [Concomitant]
  5. PRILOSEC                           /00661201/ [Concomitant]
  6. POTASSIUM [Concomitant]
  7. VITAMIN D                          /00107901/ [Concomitant]
  8. ZEMPLAR [Concomitant]
  9. HYDROCHLOROTHIAZIDE [Concomitant]

REACTIONS (4)
  - Herpes zoster [Recovering/Resolving]
  - Sinusitis [Unknown]
  - Bacterial infection [Unknown]
  - Hypersensitivity [Unknown]
